FAERS Safety Report 15715625 (Version 1)
Quarter: 2018Q4

REPORT INFORMATION
  Report Type: Report from Study
  Country: US (occurrence: US)
  Receive Date: 20181212
  Receipt Date: 20181212
  Transmission Date: 20190205
  Serious: Yes (Hospitalization)
  Sender: FDA-Public Use
  Company Number: US-GILEAD-2018-0379754

PATIENT
  Age: 31 Year
  Sex: Male

DRUGS (1)
  1. AZTREONAM LYSINE [Suspect]
     Active Substance: AZTREONAM LYSINE
     Indication: CYSTIC FIBROSIS
     Dosage: 75 MG, TID ON 28 DAYS OFF 28
     Route: 055
     Dates: start: 2013

REACTIONS (2)
  - Condition aggravated [Recovered/Resolved]
  - Infection [Recovered/Resolved]
